FAERS Safety Report 6565923-6 (Version None)
Quarter: 2010Q1

REPORT INFORMATION
  Report Type: 
  Country: None (occurrence: None)
  Receive Date: 20100129
  Receipt Date: 20100129
  Transmission Date: 20100710
  Serious: Yes (Other)
  Sender: FDA-Public Use
  Company Number: None

PATIENT
  Sex: Male
  Weight: 76.8 kg

DRUGS (2)
  1. KEPPRA [Suspect]
     Indication: GRAND MAL CONVULSION
     Dosage: 250MG QD PO
     Route: 048
     Dates: start: 20090616, end: 20090729
  2. KEPPRA [Suspect]
     Indication: GRAND MAL CONVULSION
     Dosage: 100MG BID PO
     Route: 048
     Dates: start: 20090616, end: 20090729

REACTIONS (2)
  - CONVULSION [None]
  - PRODUCT SUBSTITUTION ISSUE [None]
